FAERS Safety Report 23936931 (Version 1)
Quarter: 2024Q2

REPORT INFORMATION
  Report Type: Spontaneous
  Country: US (occurrence: None)
  Receive Date: 20240603
  Receipt Date: 20240603
  Transmission Date: 20240716
  Serious: Yes (Hospitalization)
  Sender: FDA-Public Use
  Company Number: None

PATIENT
  Age: 77 Year
  Sex: Male
  Weight: 103.5 kg

DRUGS (2)
  1. AMBRISENTAN [Suspect]
     Active Substance: AMBRISENTAN
     Indication: Pulmonary arterial hypertension
     Dosage: FREQUENCY : DAILY;?
     Route: 048
     Dates: start: 20230623
  2. SILDENAFIL [Concomitant]
     Active Substance: SILDENAFIL
     Dates: start: 20230623

REACTIONS (4)
  - Fluid retention [None]
  - Oedema peripheral [None]
  - Oedema peripheral [None]
  - Localised oedema [None]

NARRATIVE: CASE EVENT DATE: 20240603
